FAERS Safety Report 6115783-2 (Version None)
Quarter: 2009Q1

REPORT INFORMATION
  Report Type: 
  Country: None (occurrence: None)
  Receive Date: 20090313
  Receipt Date: 20090210
  Transmission Date: 20090719
  Serious: Yes (Hospitalization)
  Sender: FDA-Public Use
  Company Number: AT-GENENTECH-256624

PATIENT
  Sex: Male

DRUGS (7)
  1. EFALIZUMAB [Suspect]
     Indication: PSORIASIS
     Dosage: 0.9 ML, 1/WEEK
     Dates: start: 20070927, end: 20081024
  2. EFALIZUMAB [Suspect]
  3. LOSARTAN [Concomitant]
     Indication: HYPERTENSION
     Dosage: 12.5 MG, 1/WEEK
     Dates: start: 20010101
  4. SIMVASTATIN [Concomitant]
     Indication: HYPERLIPIDAEMIA
     Dosage: 20 MG, QD
     Dates: start: 20071201
  5. MIANSERIN [Concomitant]
     Indication: DEPRESSION
     Dosage: 1 UNK, QD
     Dates: start: 20080205
  6. CEPHALEXIN [Concomitant]
     Indication: FOLLICULITIS
     Dosage: UNK
     Dates: start: 20081103, end: 20081111
  7. ETANERCEPT [Concomitant]
     Indication: PSORIASIS
     Dosage: 50 MG, UNK
     Dates: start: 20081029

REACTIONS (3)
  - DEPRESSION [None]
  - PSORIASIS [None]
  - RASH [None]
